FAERS Safety Report 5948645-1 (Version None)
Quarter: 2008Q4

REPORT INFORMATION
  Report Type: 
  Country: None (occurrence: None)
  Receive Date: 20081111
  Receipt Date: 20081106
  Transmission Date: 20090506
  Serious: Yes (Hospitalization, Other)
  Sender: FDA-Public Use
  Company Number: US-ASTRAZENECA-2008UW15884

PATIENT
  Age: 74 Year
  Sex: Female
  Weight: 90.7 kg

DRUGS (2)
  1. NEXIUM [Suspect]
     Indication: GASTROOESOPHAGEAL REFLUX DISEASE
     Route: 048
     Dates: end: 20070101
  2. LEVOXYL [Concomitant]
     Dates: start: 20030101, end: 20070101

REACTIONS (4)
  - COLITIS ISCHAEMIC [None]
  - FALL [None]
  - HIP FRACTURE [None]
  - RECTAL HAEMORRHAGE [None]
